APPROVED DRUG PRODUCT: MEDIPREN
Active Ingredient: IBUPROFEN
Strength: 200MG
Dosage Form/Route: TABLET;ORAL
Application: A070475 | Product #001
Applicant: MCNEIL CONSUMER PRODUCTS CO DIV MCNEILAB INC
Approved: Feb 6, 1986 | RLD: No | RS: No | Type: DISCN